FAERS Safety Report 12466960 (Version 3)
Quarter: 2016Q3

REPORT INFORMATION
  Report Type: Report from Study
  Country: CO (occurrence: CO)
  Receive Date: 20160615
  Receipt Date: 20160804
  Transmission Date: 20161109
  Serious: Yes (Other)
  Sender: FDA-Public Use
  Company Number: PHHY2016CO081625

PATIENT
  Sex: Male
  Weight: 62 kg

DRUGS (1)
  1. VOTRIENT [Suspect]
     Active Substance: PAZOPANIB HYDROCHLORIDE
     Indication: RENAL CANCER METASTATIC
     Dosage: 400 MG, BID (TWICE A DAY)
     Route: 048
     Dates: start: 20160303, end: 20160614

REACTIONS (9)
  - Eating disorder [Unknown]
  - Vomiting [Unknown]
  - Weight decreased [Recovered/Resolved]
  - Eye pain [Not Recovered/Not Resolved]
  - Myopia [Unknown]
  - Lacrimation increased [Unknown]
  - Diarrhoea [Unknown]
  - Headache [Unknown]
  - Alopecia [Unknown]
